FAERS Safety Report 16362561 (Version 1)
Quarter: 2019Q3

REPORT INFORMATION
  Report Type: Spontaneous
  Country: US (occurrence: US)
  Receive Date: 20190524
  Receipt Date: 20190524
  Transmission Date: 20191004
  Serious: Yes (Other)
  Sender: FDA-Public Use
  Company Number: None

PATIENT
  Age: 22 Year
  Sex: Female
  Weight: 43 kg

DRUGS (5)
  1. NEXPLANON [Suspect]
     Active Substance: ETONOGESTREL
  2. ASTHMA PUFFER [Concomitant]
  3. PANADOL [Concomitant]
     Active Substance: ACETAMINOPHEN
  4. ACNE CREAM [Concomitant]
     Active Substance: UNSPECIFIED INGREDIENT
  5. IBUPROFEN. [Concomitant]
     Active Substance: IBUPROFEN

REACTIONS (5)
  - Blood testosterone increased [None]
  - Alopecia [None]
  - Bladder disorder [None]
  - Sleep disorder [None]
  - Acne [None]

NARRATIVE: CASE EVENT DATE: 20190114
